FAERS Safety Report 5741756-5 (Version None)
Quarter: 2008Q2

REPORT INFORMATION
  Report Type: 
  Country: None (occurrence: None)
  Receive Date: 20080519
  Receipt Date: 20070627
  Transmission Date: 20081010
  Serious: No
  Sender: FDA-Public Use
  Company Number: US-BAYER-US-2007-023970

PATIENT
  Age: 54 Year
  Sex: Female

DRUGS (3)
  1. ULTRAVIST 300 [Suspect]
     Indication: COMPUTERISED TOMOGRAM
     Dosage: UNIT DOSE: 140 ML
     Route: 042
     Dates: start: 20070524, end: 20070524
  2. BENADRYL ^PFIZER WARNER-LAMBERT^ [Concomitant]
     Indication: PREMEDICATION
  3. PREDNISONE [Concomitant]
     Indication: PREMEDICATION

REACTIONS (1)
  - URTICARIA [None]
